FAERS Safety Report 9861394 (Version 1)
Quarter: 2014Q1

REPORT INFORMATION
  Report Type: Spontaneous
  Country: US (occurrence: US)
  Receive Date: 20140203
  Receipt Date: 20140203
  Transmission Date: 20141002
  Serious: Yes (Hospitalization, Other)
  Sender: FDA-Public Use
  Company Number: US-009507513-1401USA014398

PATIENT
  Age: 40 Year
  Sex: Female

DRUGS (6)
  1. JANUMET XR [Suspect]
     Indication: TYPE 2 DIABETES MELLITUS
     Dosage: 100/1000 MG, QD
     Route: 048
     Dates: start: 20140124
  2. EXFORGE [Suspect]
  3. DILANTIN [Concomitant]
     Dosage: 100 MG, BID
     Route: 048
  4. PROTONIX [Concomitant]
     Dosage: 40 MG, BID
  5. AMLODIPINE [Concomitant]
     Dosage: 10 MG, QD
  6. SUCRALFATE [Concomitant]
     Dosage: 1 G, QID

REACTIONS (1)
  - Pancreatitis [Recovering/Resolving]
